FAERS Safety Report 24848990 (Version 1)
Quarter: 2025Q1

REPORT INFORMATION
  Report Type: Spontaneous
  Country: US (occurrence: US)
  Receive Date: 20250116
  Receipt Date: 20250116
  Transmission Date: 20250408
  Serious: Yes (Other)
  Sender: GLAXOSMITHKLINE
  Company Number: US-GSKCCFUS-Case-02190423_AE-120445

PATIENT

DRUGS (1)
  1. BREO ELLIPTA [Suspect]
     Active Substance: FLUTICASONE FUROATE\VILANTEROL TRIFENATATE
     Indication: Product used for unknown indication

REACTIONS (1)
  - Dyspnoea [Not Recovered/Not Resolved]

NARRATIVE: CASE EVENT DATE: 20250109
